FAERS Safety Report 4352970-8 (Version None)
Quarter: 2004Q2

REPORT INFORMATION
  Report Type: 
  Country: None (occurrence: None)
  Receive Date: 20040504
  Receipt Date: 20040429
  Transmission Date: 20050107
  Serious: Yes (Hospitalization)
  Sender: FDA-Public Use
  Company Number: US-MERCK-0404USA02541

PATIENT
  Age: 66 Year
  Sex: Male

DRUGS (4)
  1. ALLOPURINOL [Concomitant]
     Route: 065
  2. TENORMIN [Concomitant]
     Route: 065
  3. AVAPRO [Concomitant]
     Route: 065
  4. ZOCOR [Suspect]
     Indication: HYPERCHOLESTEROLAEMIA
     Route: 048
     Dates: end: 20020201

REACTIONS (2)
  - DIALYSIS [None]
  - RENAL FAILURE [None]
